FAERS Safety Report 7652577-0 (Version None)
Quarter: 2011Q3

REPORT INFORMATION
  Report Type: 
  Country: None (occurrence: None)
  Receive Date: 20110803
  Receipt Date: 20110802
  Transmission Date: 20111222
  Serious: Yes (Hospitalization, Other)
  Sender: FDA-Public Use
  Company Number: FR-BRISTOL-MYERS SQUIBB COMPANY-15923717

PATIENT
  Age: 85 Year
  Sex: Male

DRUGS (13)
  1. ILOMEDINE [Suspect]
     Indication: LEUKOCYTOCLASTIC VASCULITIS
     Route: 042
     Dates: start: 20100106, end: 20100115
  2. AMLODIPINE BESYLATE [Concomitant]
     Route: 048
  3. AMOXICILLIN TRIHYDRATE [Concomitant]
  4. BISOPROLOL FUMARATE [Concomitant]
     Route: 048
  5. DIGOXIN [Concomitant]
     Dosage: 1DF=1 .UNIT NOT SPECIFIED
     Route: 048
  6. FLAGYL [Concomitant]
     Route: 048
  7. PAROXETINE HCL [Concomitant]
     Route: 048
  8. POTASSIUM CHLORIDE [Concomitant]
     Dosage: 1DF=2 .UNIT NOT SPECIFIED
     Route: 048
  9. COUMADIN [Suspect]
     Indication: ARRHYTHMIA
     Route: 048
  10. LASIX [Concomitant]
     Dosage: 1DF=1.UNIT NOT SPECIFIED
     Route: 048
  11. MORPHINE SULFATE [Concomitant]
     Dosage: SKENAN LP
  12. RAMIPRIL [Concomitant]
     Route: 048
  13. IMOVANE [Concomitant]
     Dosage: 1DF=1. UNIT NOT SPECIFIED

REACTIONS (9)
  - HAEMATEMESIS [None]
  - AGITATION [None]
  - OVERDOSE [None]
  - MALLORY-WEISS SYNDROME [None]
  - HEADACHE [None]
  - CARDIAC FAILURE [None]
  - LEUKOCYTOCLASTIC VASCULITIS [None]
  - CONFUSIONAL STATE [None]
  - RESPIRATORY FAILURE [None]
